FAERS Safety Report 8773426 (Version 2)
Quarter: 2013Q4

REPORT INFORMATION
  Report Type: Spontaneous
  Country: US (occurrence: US)
  Receive Date: 20120907
  Receipt Date: 20131101
  Transmission Date: 20140711
  Serious: No
  Sender: FDA-Public Use
  Company Number: US-009507513-1208USA010456

PATIENT
  Age: 5 Year
  Sex: Female
  Weight: 22.68 kg

DRUGS (2)
  1. CLARITIN ORAL SOLUTION [Suspect]
     Indication: HYPERSENSITIVITY
     Dosage: 5 MG, BID
     Route: 048
     Dates: start: 20120814
  2. VITAMINS (UNSPECIFIED) [Concomitant]
     Dosage: UNK, UNKNOWN

REACTIONS (1)
  - Overdose [Unknown]
